FAERS Safety Report 5688511-2 (Version None)
Quarter: 2008Q1

REPORT INFORMATION
  Report Type: 
  Country: None (occurrence: None)
  Receive Date: 20080331
  Receipt Date: 20080314
  Transmission Date: 20080703
  Serious: Yes (Other)
  Sender: FDA-Public Use
  Company Number: US-BAYER-200817696NA

PATIENT
  Age: 66 Year
  Sex: Male

DRUGS (6)
  1. LEVITRA [Suspect]
     Indication: ERECTILE DYSFUNCTION
     Route: 048
     Dates: start: 20080311
  2. FLOMAX [Concomitant]
     Dosage: TOTAL DAILY DOSE: 0.4 MG
  3. AMLODIPINE [Concomitant]
     Dosage: TOTAL DAILY DOSE: 2.5 MG
  4. ZETIA [Concomitant]
     Dosage: TOTAL DAILY DOSE: 10 MG
  5. DYAZIDE [Concomitant]
  6. LISINOPRIL [Concomitant]
     Dosage: TOTAL DAILY DOSE: 40 MG

REACTIONS (2)
  - BLOOD PRESSURE DECREASED [None]
  - HYPOTENSION [None]
